FAERS Safety Report 6835369-1 (Version None)
Quarter: 2010Q3

REPORT INFORMATION
  Report Type: 
  Country: None (occurrence: None)
  Receive Date: 20100707
  Receipt Date: 20100628
  Transmission Date: 20110219
  Serious: Yes (Hospitalization, Other)
  Sender: FDA-Public Use
  Company Number: ABWAS-10-0318

PATIENT
  Age: 39 Year
  Sex: Female
  Weight: 62.551 kg

DRUGS (8)
  1. ABRAXANE [Suspect]
     Indication: BREAST CANCER
     Dosage: (135 MG)
     Dates: start: 20100423, end: 20100430
  2. SUNITINIB MALATE [Suspect]
     Indication: BREAST CANCER
     Dosage: (25 MG), ORAL
     Route: 048
     Dates: start: 20100423, end: 20100508
  3. TRIAMCINOLONE ACETONIDE [Concomitant]
  4. ZYRTEC [Concomitant]
  5. BENADRYL [Concomitant]
  6. DEXAMETHASONE [Concomitant]
  7. XANAX [Concomitant]
  8. ZOFRAN [Concomitant]

REACTIONS (3)
  - ALANINE AMINOTRANSFERASE INCREASED [None]
  - ASPARTATE AMINOTRANSFERASE INCREASED [None]
  - FEBRILE NEUTROPENIA [None]
